FAERS Safety Report 8414841-7 (Version None)
Quarter: 2012Q2

REPORT INFORMATION
  Report Type: 
  Country: None (occurrence: None)
  Receive Date: 20120606
  Receipt Date: 20120529
  Transmission Date: 20120825
  Serious: No
  Sender: FDA-Public Use
  Company Number: US-BIOGENIDEC-2012BI018880

PATIENT
  Age: 58 Year
  Sex: Female

DRUGS (5)
  1. AVONEX [Suspect]
     Route: 030
     Dates: start: 20120510, end: 20120510
  2. AVONEX [Suspect]
     Route: 030
     Dates: start: 20120524, end: 20120524
  3. AVONEX [Suspect]
     Route: 030
     Dates: start: 20120503, end: 20120503
  4. AVONEX [Suspect]
     Indication: MULTIPLE SCLEROSIS
     Route: 030
     Dates: start: 19991001, end: 19991201
  5. AVONEX [Suspect]
     Route: 030
     Dates: start: 20120517, end: 20120517

REACTIONS (6)
  - TREMOR [None]
  - INFLUENZA LIKE ILLNESS [None]
  - EYE PAIN [None]
  - COUGH [None]
  - TOOTHACHE [None]
  - INSOMNIA [None]
